FAERS Safety Report 5468083-8 (Version None)
Quarter: 2007Q3

REPORT INFORMATION
  Report Type: 
  Country: None (occurrence: None)
  Receive Date: 20070921
  Receipt Date: 20070906
  Transmission Date: 20080115
  Serious: Yes (Other)
  Sender: FDA-Public Use
  Company Number: 2007RR-09899

PATIENT
  Age: 67 Year
  Sex: Male
  Weight: 67 kg

DRUGS (7)
  1. CIPROFLOXACIN [Suspect]
     Indication: BRONCHITIS
     Dosage: 1000 MG, ORAL
     Route: 048
  2. CIPROFLOXACIN [Suspect]
     Indication: CHRONIC OBSTRUCTIVE PULMONARY DISEASE
     Dosage: 1000 MG, ORAL
     Route: 048
  3. ASPIRIN [Concomitant]
  4. LIPITOR [Concomitant]
  5. SERETIDE              (FLUTICASONE PROPIONATE, SALMETEROL XINAFOATE) [Concomitant]
  6. SPIRIVA [Concomitant]
  7. ZANTAC             (RANITIDE HYDROCHLORIDE) [Concomitant]

REACTIONS (2)
  - MUSCLE RUPTURE [None]
  - TENDONITIS [None]
